FAERS Safety Report 7418096 (Version 2)
Quarter: 2013Q3

REPORT INFORMATION
  Report Type: Spontaneous
  Country: ES (occurrence: ES)
  Receive Date: 20100614
  Receipt Date: 20130722
  Transmission Date: 20140515
  Serious: Yes (Life-Threatening, Hospitalization)
  Sender: FDA-Public Use
  Company Number: ES-JNJFOC-20100603014

PATIENT
  Age: 55 Year
  Sex: Female
  Weight: 90 kg

DRUGS (3)
  1. STELARA [Suspect]
     Indication: PSORIASIS
     Route: 058
     Dates: start: 20100301, end: 20100401
  2. IRBESARTAN / HYDROCHLOROTHIAZIDE [Concomitant]
     Dosage: 300/25
     Route: 048
     Dates: start: 20091014
  3. METFORMIN [Concomitant]
     Dosage: 850/8 HOURS
     Route: 048
     Dates: start: 20080529

REACTIONS (2)
  - Septic shock [Recovered/Resolved]
  - Pleural effusion [Unknown]
